FAERS Safety Report 8251156-4 (Version None)
Quarter: 2012Q2

REPORT INFORMATION
  Report Type: 
  Country: None (occurrence: None)
  Receive Date: 20120402
  Receipt Date: 20120328
  Transmission Date: 20120825
  Serious: Yes (Hospitalization, Other)
  Sender: FDA-Public Use
  Company Number: US-MERCK-1103USA00956

PATIENT
  Age: 61 Year
  Sex: Female

DRUGS (7)
  1. FOSAMAX [Suspect]
     Indication: OSTEOPENIA
     Route: 048
     Dates: start: 20020101, end: 20080601
  2. CHANTIX [Concomitant]
     Indication: EX-TOBACCO USER
     Route: 065
     Dates: start: 20070301, end: 20070801
  3. CALCIUM (UNSPECIFIED) [Concomitant]
     Indication: OSTEOPENIA
     Route: 065
  4. VITAMIN D (UNSPECIFIED) [Concomitant]
     Indication: OSTEOPENIA
     Route: 065
     Dates: start: 20080101
  5. ALENDRONATE SODIUM [Suspect]
     Indication: OSTEOPENIA
     Route: 048
     Dates: start: 20080101
  6. FOSAMAX [Suspect]
     Route: 048
     Dates: start: 20080101, end: 20081001
  7. CALCIUM CITRATE [Concomitant]
     Route: 065
     Dates: start: 20000101

REACTIONS (8)
  - RIB FRACTURE [None]
  - ADVERSE EVENT [None]
  - LOW TURNOVER OSTEOPATHY [None]
  - FRACTURE [None]
  - FEMUR FRACTURE [None]
  - HYPERTENSION [None]
  - HYPERCHOLESTEROLAEMIA [None]
  - FRACTURE NONUNION [None]
